FAERS Safety Report 9918916 (Version 1)
Quarter: 2014Q1

REPORT INFORMATION
  Report Type: Spontaneous
  Country: US (occurrence: US)
  Receive Date: 20140224
  Receipt Date: 20140224
  Transmission Date: 20141002
  Serious: No
  Sender: FDA-Public Use
  Company Number: US-PFIZER INC-2014047643

PATIENT
  Sex: Male

DRUGS (1)
  1. LYRICA [Suspect]
     Indication: FIBROMYALGIA
     Dosage: UNK

REACTIONS (5)
  - Drug effect incomplete [Unknown]
  - Arterial disorder [Unknown]
  - Cardiac disorder [Unknown]
  - Nerve injury [Unknown]
  - Muscle injury [Unknown]
